FAERS Safety Report 15657001 (Version 1)
Quarter: 2018Q4

REPORT INFORMATION
  Report Type: Report from Study
  Country: IN (occurrence: IN)
  Receive Date: 20181126
  Receipt Date: 20181126
  Transmission Date: 20190205
  Serious: Yes (Death)
  Sender: FDA-Public Use
  Company Number: IN-SAKK-2018SA148804AA

PATIENT
  Age: 75 Year
  Sex: Female
  Weight: 53 kg

DRUGS (2)
  1. INSULIN GLARGINE [Suspect]
     Active Substance: INSULIN GLARGINE
     Indication: DIABETES MELLITUS
     Dosage: 12 U
     Route: 058
     Dates: start: 20180124
  2. LANTUS [Concomitant]
     Active Substance: INSULIN GLARGINE
     Dosage: 12 U
     Route: 058

REACTIONS (2)
  - Dyspnoea [Fatal]
  - Myocardial infarction [Fatal]
